FAERS Safety Report 25423222 (Version 1)
Quarter: 2025Q2

REPORT INFORMATION
  Report Type: Spontaneous
  Country: US (occurrence: US)
  Receive Date: 20250611
  Receipt Date: 20250611
  Transmission Date: 20250717
  Serious: No
  Sender: ABBVIE
  Company Number: US-ABBVIE-6312764

PATIENT
  Age: 92 Year
  Sex: Male

DRUGS (2)
  1. ACULAR LS [Suspect]
     Active Substance: KETOROLAC TROMETHAMINE
     Indication: Retinal disorder
     Dosage: ONE DROP PER EYE
     Route: 047
     Dates: start: 202503, end: 202505
  2. ACULAR LS [Suspect]
     Active Substance: KETOROLAC TROMETHAMINE
     Dosage: ONE DROP ON THE RIGHT EYE
     Route: 047
     Dates: start: 202501, end: 202502

REACTIONS (2)
  - Eczema [Unknown]
  - Skin ulcer [Not Recovered/Not Resolved]

NARRATIVE: CASE EVENT DATE: 20250101
